FAERS Safety Report 12760222 (Version 1)
Quarter: 2016Q3

REPORT INFORMATION
  Report Type: Spontaneous
  Country: NO (occurrence: NO)
  Receive Date: 20160919
  Receipt Date: 20160919
  Transmission Date: 20161109
  Serious: Yes (Hospitalization, Other)
  Sender: FDA-Public Use
  Company Number: NO-TAKEDA-2016TUS016196

PATIENT

DRUGS (1)
  1. ENTYVIO [Suspect]
     Active Substance: VEDOLIZUMAB
     Indication: PRODUCT USED FOR UNKNOWN INDICATION
     Dosage: UNK
     Route: 065
     Dates: start: 20160315

REACTIONS (6)
  - Cytomegalovirus infection [Unknown]
  - Colostomy [Unknown]
  - Post procedural complication [Unknown]
  - Fatigue [Unknown]
  - Colitis ulcerative [Unknown]
  - Pyrexia [Unknown]
